FAERS Safety Report 10079393 (Version 2)
Quarter: 2014Q2

REPORT INFORMATION
  Report Type: Spontaneous
  Country: US (occurrence: US)
  Receive Date: 20140415
  Receipt Date: 20140422
  Transmission Date: 20141212
  Serious: Yes (Other)
  Sender: FDA-Public Use
  Company Number: US-RB-064956-14

PATIENT
  Age: 85 Year
  Sex: Female

DRUGS (5)
  1. DELSYM [Suspect]
     Indication: COUGH
     Dosage: TOOK 1 TIME (DOSE: 10ML) ON 09-APR-2014
     Route: 048
     Dates: start: 20140409
  2. DELSYM [Suspect]
     Indication: RESPIRATORY TRACT CONGESTION
     Dosage: TOOK 1 TIME (DOSE: 10ML) ON 09-APR-2014
     Route: 048
     Dates: start: 20140409
  3. TOPERAL [Concomitant]
     Indication: FOETAL HEART RATE DISORDER
  4. LARASAPAM [Concomitant]
     Indication: UNEVALUABLE EVENT
  5. LARASAPAM [Concomitant]
     Indication: INSOMNIA

REACTIONS (10)
  - Blood pressure increased [Recovered/Resolved]
  - Haematochezia [Not Recovered/Not Resolved]
  - Chest discomfort [Unknown]
  - Chest discomfort [Not Recovered/Not Resolved]
  - Pallor [Not Recovered/Not Resolved]
  - Hypersensitivity [Not Recovered/Not Resolved]
  - Malaise [Not Recovered/Not Resolved]
  - Product taste abnormal [Unknown]
  - Malaise [Not Recovered/Not Resolved]
  - Dizziness [Not Recovered/Not Resolved]
